FAERS Safety Report 20750978 (Version 1)
Quarter: 2022Q2

REPORT INFORMATION
  Report Type: Spontaneous
  Country: CN (occurrence: CN)
  Receive Date: 20220426
  Receipt Date: 20220426
  Transmission Date: 20220720
  Serious: Yes (Death, Hospitalization)
  Sender: FDA-Public Use
  Company Number: CN-STRIDES ARCOLAB LIMITED-2022SP004494

PATIENT
  Age: 48 Year
  Sex: Female

DRUGS (42)
  1. DEXAMETHASONE [Suspect]
     Active Substance: DEXAMETHASONE
     Indication: B-cell small lymphocytic lymphoma
     Dosage: 20 MILLIGRAM, CYCLICAL ONE CYCLE OF R-FND; D1-5
     Route: 065
     Dates: start: 201309
  2. DEXAMETHASONE [Suspect]
     Active Substance: DEXAMETHASONE
     Indication: Chronic lymphocytic leukaemia
     Dosage: 20 MILLIGRAM, D1-4, D8-11
     Route: 065
     Dates: start: 201311
  3. DEXAMETHASONE [Suspect]
     Active Substance: DEXAMETHASONE
     Indication: B-cell small lymphocytic lymphoma
     Dosage: 10 MILLIGRAM,CHOP-E REGIMEN; D1
     Route: 065
     Dates: start: 2019
  4. DEXAMETHASONE [Suspect]
     Active Substance: DEXAMETHASONE
     Dosage: 15 MILLIGRAM,CHOP-E REGIMEN; D2-4 AND D8-14
     Route: 065
     Dates: start: 2019
  5. DEXAMETHASONE [Suspect]
     Active Substance: DEXAMETHASONE
     Dosage: 20 MILLIGRAM,CHOP-E REGIMEN; D5-7
     Route: 065
     Dates: start: 2019
  6. FLUDARABINE [Suspect]
     Active Substance: FLUDARABINE PHOSPHATE
     Indication: B-cell small lymphocytic lymphoma
     Dosage: 40 MILLIGRAM, DAY 1
     Route: 065
     Dates: start: 201205
  7. FLUDARABINE [Suspect]
     Active Substance: FLUDARABINE PHOSPHATE
     Indication: Chronic lymphocytic leukaemia
     Dosage: 50 MILLIGRAM, DAY 1-3
     Route: 065
     Dates: start: 20120531, end: 20120623
  8. FLUDARABINE [Suspect]
     Active Substance: FLUDARABINE PHOSPHATE
     Dosage: 50 MILLIGRAM, CYCLICALTWO CYCLES OF R-FC; D1-3
     Route: 065
     Dates: start: 201305
  9. FLUDARABINE [Suspect]
     Active Substance: FLUDARABINE PHOSPHATE
     Dosage: 50 MILLIGRAM CYCLICALTWO CYCLES OF R-FC; D1-3
     Route: 065
     Dates: start: 201306
  10. FLUDARABINE [Suspect]
     Active Substance: FLUDARABINE PHOSPHATE
     Dosage: 40 MILLIGRAM,TWO CYCLES OF R-FC; D1-3
     Route: 065
     Dates: start: 201307
  11. FLUDARABINE [Suspect]
     Active Substance: FLUDARABINE PHOSPHATE
     Dosage: 40 MILLIGRAMTWO CYCLES OF R-FC; D1-3
     Route: 065
     Dates: start: 201308
  12. FLUDARABINE [Suspect]
     Active Substance: FLUDARABINE PHOSPHATE
     Dosage: 40 MILIGRAM,CYCLICALONE CYCLE OF R-FND; D1-5
     Route: 065
     Dates: start: 201309
  13. MITOXANTRONE [Suspect]
     Active Substance: MITOXANTRONE HYDROCHLORIDE
     Indication: B-cell small lymphocytic lymphoma
     Dosage: 10-24 MILLIGRAM, CYCLICAL
     Route: 065
     Dates: start: 20120531, end: 20120623
  14. MITOXANTRONE [Suspect]
     Active Substance: MITOXANTRONE HYDROCHLORIDE
     Indication: Chronic lymphocytic leukaemia
     Dosage: UNK,CYCLICAL TWO CYCLES OF FND; 10-24 MG
     Route: 065
     Dates: start: 201305
  15. MITOXANTRONE [Suspect]
     Active Substance: MITOXANTRONE HYDROCHLORIDE
     Dosage: UNK,TWO CYCLES OF FND; 10-24 MG
     Route: 065
     Dates: start: 201306
  16. MITOXANTRONE [Suspect]
     Active Substance: MITOXANTRONE HYDROCHLORIDE
     Dosage: 16 MILLIGRAM,ONE CYCLE OF R-FND; D1
     Route: 065
     Dates: start: 201309
  17. CYCLOPHOSPHAMIDE [Suspect]
     Active Substance: CYCLOPHOSPHAMIDE
     Indication: B-cell small lymphocytic lymphoma
     Dosage: 0.2 GRAM, DAY 1-4
     Route: 065
     Dates: start: 201205
  18. CYCLOPHOSPHAMIDE [Suspect]
     Active Substance: CYCLOPHOSPHAMIDE
     Indication: B-cell small lymphocytic lymphoma
     Dosage: 10 MILLIGRAM, DAY 1-5
     Route: 065
     Dates: start: 20120531, end: 20120623
  19. CYCLOPHOSPHAMIDE [Suspect]
     Active Substance: CYCLOPHOSPHAMIDE
     Dosage: 10 MILLIGRAM, CYCLICALTWO CYCLES OF FND; D1-5
     Route: 065
     Dates: start: 201305
  20. CYCLOPHOSPHAMIDE [Suspect]
     Active Substance: CYCLOPHOSPHAMIDE
     Dosage: 10 MILLIGRAM,CYCLICAL TWO CYCLES OF FND; D1-5
     Route: 065
     Dates: start: 201306
  21. CYCLOPHOSPHAMIDE [Suspect]
     Active Substance: CYCLOPHOSPHAMIDE
     Dosage: 0.3 GRAM,TWO CYCLES OF R-FC; D1-3
     Route: 065
     Dates: start: 201307
  22. CYCLOPHOSPHAMIDE [Suspect]
     Active Substance: CYCLOPHOSPHAMIDE
     Dosage: 0.3 GRAM,TWO CYCLES OF R-FC; D1-3
     Route: 065
     Dates: start: 201308
  23. CYCLOPHOSPHAMIDE [Suspect]
     Active Substance: CYCLOPHOSPHAMIDE
     Dosage: 1.2 GRAMCHOP-E REGIMEN; D1
     Route: 065
     Dates: start: 2019
  24. RITUXIMAB [Suspect]
     Active Substance: RITUXIMAB
     Indication: B-cell small lymphocytic lymphoma
     Dosage: 600 MILLIGRAM CYCLICALTWO CYCLES OF R-FC; D0
     Route: 065
     Dates: start: 201307
  25. RITUXIMAB [Suspect]
     Active Substance: RITUXIMAB
     Indication: Chronic lymphocytic leukaemia
     Dosage: 600 MILLIGRAM CYCLICAL,TWO CYCLES OF R-FC; D0
     Route: 065
     Dates: start: 201308
  26. RITUXIMAB [Suspect]
     Active Substance: RITUXIMAB
     Dosage: 600 MILLIGRAM,CYCLICALONE CYCLE OF R-FND; D0
     Route: 065
     Dates: start: 201309
  27. DOXORUBICIN [Suspect]
     Active Substance: DOXORUBICIN
     Indication: Chronic lymphocytic leukaemia
     Dosage: 80 MILLIGRAM,CHOP-E REGIMEN; D1
     Route: 065
     Dates: start: 2019
  28. DOXORUBICIN [Suspect]
     Active Substance: DOXORUBICIN
     Indication: B-cell small lymphocytic lymphoma
  29. VINCRISTINE [Suspect]
     Active Substance: VINCRISTINE
     Indication: Chronic lymphocytic leukaemia
     Dosage: 4 MILLIGRAMCHOP-E REGIMEN; D1
     Route: 065
     Dates: start: 2019
  30. VINCRISTINE [Suspect]
     Active Substance: VINCRISTINE
     Indication: B-cell small lymphocytic lymphoma
  31. ETOPOSIDE [Suspect]
     Active Substance: ETOPOSIDE
     Indication: Chronic lymphocytic leukaemia
     Dosage: 75 MILLIGRAM,CHOP-E REGIMEN; D3-5
     Route: 065
     Dates: start: 2019
  32. ETOPOSIDE [Suspect]
     Active Substance: ETOPOSIDE
     Indication: B-cell small lymphocytic lymphoma
  33. IBRUTINIB [Concomitant]
     Active Substance: IBRUTINIB
     Indication: B-cell small lymphocytic lymphoma
     Dosage: 0.42 GRAM, QD
     Route: 048
     Dates: start: 201902
  34. IBRUTINIB [Concomitant]
     Active Substance: IBRUTINIB
     Indication: Chronic lymphocytic leukaemia
  35. METHYLPREDNISOLONE [Concomitant]
     Active Substance: METHYLPREDNISOLONE
     Indication: Chronic lymphocytic leukaemia
     Dosage: UNK, HIGH DOSE
     Route: 065
  36. METHYLPREDNISOLONE [Concomitant]
     Active Substance: METHYLPREDNISOLONE
     Indication: B-cell small lymphocytic lymphoma
  37. GEMCITABINE [Concomitant]
     Active Substance: GEMCITABINE
     Indication: B-cell small lymphocytic lymphoma
     Dosage: UNK
     Route: 065
  38. GEMCITABINE [Concomitant]
     Active Substance: GEMCITABINE
     Indication: Chronic lymphocytic leukaemia
  39. GEMCITABINE [Concomitant]
     Active Substance: GEMCITABINE
     Indication: B-cell small lymphocytic lymphoma
  40. OXALIPLATIN [Concomitant]
     Active Substance: OXALIPLATIN
     Indication: B-cell small lymphocytic lymphoma
     Dosage: UNK
     Route: 065
  41. OXALIPLATIN [Concomitant]
     Active Substance: OXALIPLATIN
     Indication: Chronic lymphocytic leukaemia
  42. OXALIPLATIN [Concomitant]
     Active Substance: OXALIPLATIN
     Indication: B-cell small lymphocytic lymphoma

REACTIONS (3)
  - Cerebral haemorrhage [Fatal]
  - Cytopenia [Unknown]
  - Drug ineffective [Unknown]

NARRATIVE: CASE EVENT DATE: 20130501
